FAERS Safety Report 14534149 (Version 3)
Quarter: 2018Q3

REPORT INFORMATION
  Report Type: Spontaneous
  Country: AU (occurrence: AU)
  Receive Date: 20180215
  Receipt Date: 20180910
  Transmission Date: 20181010
  Serious: Yes (Other)
  Sender: FDA-Public Use
  Company Number: AU-ASTRAZENECA-2018SE19849

PATIENT
  Sex: Female
  Weight: 55 kg

DRUGS (2)
  1. OSIMERTINIB. [Suspect]
     Active Substance: OSIMERTINIB
     Dosage: 80
     Route: 048
     Dates: start: 20180201, end: 20180828
  2. GEFITINIB. [Suspect]
     Active Substance: GEFITINIB
     Indication: NON-SMALL CELL LUNG CANCER METASTATIC
     Route: 048
     Dates: start: 20170210, end: 20180131

REACTIONS (1)
  - Malignant neoplasm progression [Not Recovered/Not Resolved]
